FAERS Safety Report 8309750-8 (Version None)
Quarter: 2012Q2

REPORT INFORMATION
  Report Type: 
  Country: None (occurrence: None)
  Receive Date: 20120425
  Receipt Date: 20120412
  Transmission Date: 20120825
  Serious: Yes (Hospitalization)
  Sender: FDA-Public Use
  Company Number: PHHY2012JP029335

PATIENT
  Age: 71 Year
  Sex: Male

DRUGS (2)
  1. PREDNISOLONE [Concomitant]
     Indication: INTERSTITIAL LUNG DISEASE
     Dosage: UNK UKN, UNK
     Route: 048
  2. CYCLOSPORINE [Suspect]
     Indication: INTERSTITIAL LUNG DISEASE
     Dosage: UNK UKN, UNK
     Route: 048

REACTIONS (9)
  - SPEECH DISORDER [None]
  - SCEDOSPORIUM INFECTION [None]
  - BRAIN MASS [None]
  - URINARY INCONTINENCE [None]
  - DECREASED ACTIVITY [None]
  - NERVOUS SYSTEM DISORDER [None]
  - CENTRAL NERVOUS SYSTEM LESION [None]
  - PNEUMONIA [None]
  - BRAIN ABSCESS [None]
